FAERS Safety Report 15882938 (Version 1)
Quarter: 2019Q1

REPORT INFORMATION
  Report Type: Spontaneous
  Country: US (occurrence: US)
  Receive Date: 20190129
  Receipt Date: 20190129
  Transmission Date: 20190417
  Serious: Yes (Other)
  Sender: FDA-Public Use
  Company Number: US-SA-2019SA020905

PATIENT
  Age: 73 Year
  Sex: Female

DRUGS (15)
  1. AMANTADINE. [Concomitant]
     Active Substance: AMANTADINE HYDROCHLORIDE
     Dosage: HARD CAPSULE ,100 MG
  2. VITAMIN B12 [Concomitant]
     Active Substance: CYANOCOBALAMIN
     Dosage: 1000 UG
  3. GLUCOSAMINE [Concomitant]
     Active Substance: GLUCOSAMINE
     Dosage: 500-400M
  4. BIOTIN [Suspect]
     Active Substance: BIOTIN
     Dosage: UNK
  5. ASPIRINE [Concomitant]
     Active Substance: ASPIRIN
     Dosage: 325 MG, TABLET
  6. AUBAGIO [Suspect]
     Active Substance: TERIFLUNOMIDE
     Indication: PRODUCT USED FOR UNKNOWN INDICATION
     Dosage: 1 DF, QD
     Route: 048
     Dates: start: 20160104
  7. PRAVASTATIN. [Concomitant]
     Active Substance: PRAVASTATIN
     Dosage: 40 MG
  8. TRAZODONE [Concomitant]
     Active Substance: TRAZODONE HYDROCHLORIDE
     Dosage: HC TAB, 150 MG
  9. VERAPAMIL [Concomitant]
     Active Substance: VERAPAMIL HYDROCHLORIDE
     Dosage: TAB,180 MG, ER
  10. CALCIUM [Concomitant]
     Active Substance: CALCIUM
     Dosage: 600 MG, TABLET
  11. FISH OIL [Concomitant]
     Active Substance: FISH OIL
     Dosage: 1200 MG
  12. LISINOPRIL. [Concomitant]
     Active Substance: LISINOPRIL
     Dosage: 40 MG
  13. METAMUCIL CITRON [Concomitant]
     Dosage: POWDER 48.57%
  14. MULTIVITAMIN [VITAMINS NOS] [Concomitant]
     Dosage: UNK
  15. VENLAFAXINE [Concomitant]
     Active Substance: VENLAFAXINE HYDROCHLORIDE
     Dosage: TAB,150 MG, ER

REACTIONS (3)
  - Multiple sclerosis relapse [Recovered/Resolved]
  - Hypoaesthesia oral [Recovered/Resolved]
  - Hypoaesthesia [Recovered/Resolved]

NARRATIVE: CASE EVENT DATE: 2018
